FAERS Safety Report 24313641 (Version 2)
Quarter: 2024Q3

REPORT INFORMATION
  Report Type: Spontaneous
  Country: JP (occurrence: JP)
  Receive Date: 20240912
  Receipt Date: 20240917
  Transmission Date: 20241017
  Serious: Yes (Life-Threatening, Other)
  Sender: PFIZER
  Company Number: JP-MLMSERVICE-20240906-PI178883-00214-8

PATIENT
  Age: 67 Year
  Sex: Female

DRUGS (8)
  1. MEROPENEM [Suspect]
     Active Substance: MEROPENEM
     Indication: Encephalitis bacterial
     Dosage: 2 G, 3X/DAY
  2. MEROPENEM [Suspect]
     Active Substance: MEROPENEM
     Indication: Brain abscess
  3. MEROPENEM [Suspect]
     Active Substance: MEROPENEM
     Indication: Burkholderia cepacia complex infection
  4. ATOVAQUONE [Concomitant]
     Active Substance: ATOVAQUONE
     Indication: Infection prophylaxis
     Dosage: UNK
  5. TACROLIMUS [Concomitant]
     Active Substance: TACROLIMUS
     Indication: Still^s disease
     Dosage: UNK
  6. TOCILIZUMAB [Concomitant]
     Active Substance: TOCILIZUMAB
     Indication: Still^s disease
     Dosage: UNK
  7. PREDNISOLONE [Concomitant]
     Active Substance: PREDNISOLONE
     Indication: Still^s disease
     Dosage: UNK
  8. PREDNISOLONE [Concomitant]
     Active Substance: PREDNISOLONE
     Indication: COVID-19 pneumonia

REACTIONS (1)
  - Drug ineffective [Unknown]
